FAERS Safety Report 21786196 (Version 1)
Quarter: 2022Q4

REPORT INFORMATION
  Report Type: Spontaneous
  Country: GB (occurrence: None)
  Receive Date: 20221228
  Receipt Date: 20221228
  Transmission Date: 20230112
  Serious: Yes (Hospitalization)
  Sender: FDA-Public Use
  Company Number: None

PATIENT
  Age: 34 Year
  Sex: Male

DRUGS (1)
  1. METHOTREXATE [Suspect]
     Active Substance: METHOTREXATE
     Indication: Product used for unknown indication
     Dosage: STRENGTH: 10 MG
     Route: 065

REACTIONS (2)
  - Cellulitis [Recovered/Resolved with Sequelae]
  - Immunodeficiency [Unknown]

NARRATIVE: CASE EVENT DATE: 20221213
